FAERS Safety Report 5242003-3 (Version None)
Quarter: 2007Q1

REPORT INFORMATION
  Report Type: 
  Country: None (occurrence: None)
  Receive Date: 20070220
  Receipt Date: 20070209
  Transmission Date: 20070707
  Serious: Yes (Disabling, Other)
  Sender: FDA-Public Use
  Company Number: GB-PFIZER INC-2007003798

PATIENT
  Age: 67 Year
  Sex: Male
  Weight: 101 kg

DRUGS (10)
  1. LIPITOR [Suspect]
     Indication: RENAL FAILURE CHRONIC
     Route: 048
     Dates: start: 20041012, end: 20061213
  2. GRAPEFRUIT JUICE [Suspect]
  3. RAMIPRIL [Concomitant]
  4. FYBOGEL [Concomitant]
     Indication: CONSTIPATION
     Route: 048
  5. LANSOPRAZOLE [Concomitant]
     Indication: PROPHYLAXIS
     Route: 048
  6. AZATHIOPRINE [Concomitant]
     Indication: GLOMERULONEPHRITIS
     Route: 048
  7. FUROSEMIDE [Concomitant]
     Indication: ESSENTIAL HYPERTENSION
     Route: 048
  8. DOXAZOSIN MESYLATE [Concomitant]
     Indication: ESSENTIAL HYPERTENSION
     Route: 048
  9. AMLODIPINE [Concomitant]
     Indication: ESSENTIAL HYPERTENSION
     Route: 048
  10. PREDNISOLONE [Concomitant]

REACTIONS (7)
  - ARTHRALGIA [None]
  - FOOD INTERACTION [None]
  - GROIN PAIN [None]
  - MUSCLE SPASMS [None]
  - MUSCULOSKELETAL PAIN [None]
  - PAIN IN EXTREMITY [None]
  - TREMOR [None]
